FAERS Safety Report 10756792 (Version 2)
Quarter: 2015Q1

REPORT INFORMATION
  Report Type: Spontaneous
  Country: US (occurrence: US)
  Receive Date: 20150203
  Receipt Date: 20150205
  Transmission Date: 20150721
  Serious: No
  Sender: FDA-Public Use
  Company Number: US-AMGEN-USASP2015007973

PATIENT
  Age: 63 Year
  Sex: Female

DRUGS (2)
  1. ENBREL [Suspect]
     Active Substance: ETANERCEPT
     Indication: PSORIASIS
     Dosage: 50 MG TWICE A WEEK
     Route: 065
     Dates: start: 20030101
  2. ENBREL [Suspect]
     Active Substance: ETANERCEPT
     Indication: PSORIATIC ARTHROPATHY

REACTIONS (4)
  - Needle track marks [Unknown]
  - Extra dose administered [Unknown]
  - Injection site erythema [Not Recovered/Not Resolved]
  - Injection site macule [Not Recovered/Not Resolved]

NARRATIVE: CASE EVENT DATE: 20150126
